FAERS Safety Report 6959414-8 (Version None)
Quarter: 2010Q3

REPORT INFORMATION
  Report Type: 
  Country: None (occurrence: None)
  Receive Date: 20100831
  Receipt Date: 20100827
  Transmission Date: 20110219
  Serious: Yes (Hospitalization)
  Sender: FDA-Public Use
  Company Number: DE-ABBOTT-10P-062-0660752-00

PATIENT
  Sex: Female
  Weight: 75 kg

DRUGS (23)
  1. HUMIRA [Suspect]
     Indication: SAPHO SYNDROME
     Route: 058
     Dates: start: 20070901
  2. HUMIRA [Suspect]
     Route: 058
  3. LEVOTHYROXINE SODIUM [Concomitant]
     Indication: PRODUCT USED FOR UNKNOWN INDICATION
     Route: 048
  4. LEVOTHYROXINE SODIUM [Concomitant]
     Route: 048
  5. ANTRA [Concomitant]
     Indication: PRODUCT USED FOR UNKNOWN INDICATION
     Route: 048
  6. ACETYLCYSTEINE [Concomitant]
     Indication: PRODUCT USED FOR UNKNOWN INDICATION
     Dosage: 3 TIMES
     Route: 048
  7. AMITRIPTYLINE HCL [Concomitant]
     Indication: PRODUCT USED FOR UNKNOWN INDICATION
     Dosage: 2 TIMES
     Route: 048
  8. AMITRIPTYLINE HCL [Concomitant]
     Dosage: 2 TIMES
     Route: 048
  9. VITAMIN B6 [Concomitant]
     Indication: PRODUCT USED FOR UNKNOWN INDICATION
     Route: 042
  10. IBUPROFEN [Concomitant]
     Indication: PRODUCT USED FOR UNKNOWN INDICATION
     Dosage: 3 TIMES
     Route: 048
  11. IBUPROFEN [Concomitant]
     Dosage: 3 TIMES
     Route: 048
  12. CLEXANE [Concomitant]
     Indication: PRODUCT USED FOR UNKNOWN INDICATION
  13. LORAZEPAM [Concomitant]
     Indication: PRODUCT USED FOR UNKNOWN INDICATION
     Dosage: BUCCAL AT NIGHT
  14. FENISTIL [Concomitant]
     Indication: PRODUCT USED FOR UNKNOWN INDICATION
     Dosage: MAX THRICE PER DAY
     Route: 048
  15. FENISTIL [Concomitant]
     Dosage: IF REQUIRED
  16. AVELOX [Concomitant]
     Indication: PRODUCT USED FOR UNKNOWN INDICATION
     Dosage: (IF NEEDED PER ORAL)
     Route: 042
  17. DEXAMETHASONE TAB [Concomitant]
     Indication: PRODUCT USED FOR UNKNOWN INDICATION
     Dosage: 4 TIMES
     Route: 042
  18. KONAKION [Concomitant]
     Indication: PRODUCT USED FOR UNKNOWN INDICATION
     Dosage: KA 3 TIMES 15GGT
  19. ETHAMBUTOL HYDROCHLORIDE [Concomitant]
     Indication: PRODUCT USED FOR UNKNOWN INDICATION
     Route: 048
  20. CLONIDINE [Concomitant]
     Indication: PRODUCT USED FOR UNKNOWN INDICATION
     Dosage: 2 TIMES
     Route: 048
  21. PANTOPRAZOLE SODIUM [Concomitant]
     Indication: PRODUCT USED FOR UNKNOWN INDICATION
     Route: 048
  22. VITAMIN B6 [Concomitant]
     Route: 048
  23. ZOFRAN [Concomitant]
     Indication: PRODUCT USED FOR UNKNOWN INDICATION

REACTIONS (16)
  - BLOOD CREATININE INCREASED [None]
  - CARDIAC FAILURE [None]
  - CONSTIPATION [None]
  - DISSEMINATED TUBERCULOSIS [None]
  - GRANULOMA [None]
  - HYDROCEPHALUS [None]
  - HYPERTENSION [None]
  - HYPOTENSION [None]
  - MENINGITIS TUBERCULOUS [None]
  - PANIC ATTACK [None]
  - POLYNEUROPATHY [None]
  - PRURITUS [None]
  - SEPTIC SHOCK [None]
  - TACHYCARDIA [None]
  - VITH NERVE PARALYSIS [None]
  - VOMITING [None]
